FAERS Safety Report 13736588 (Version 1)
Quarter: 2017Q3

REPORT INFORMATION
  Report Type: Spontaneous
  Country: US (occurrence: US)
  Receive Date: 20170708
  Receipt Date: 20170708
  Transmission Date: 20171127
  Serious: Yes (Hospitalization)
  Sender: FDA-Public Use
  Company Number: None

PATIENT
  Sex: Female

DRUGS (1)
  1. VIVITROL [Suspect]
     Active Substance: NALTREXONE
     Indication: MENTAL DISORDER
     Dosage: 380MG Q4WKS SC ?
     Route: 058
     Dates: start: 20170523

REACTIONS (1)
  - Hospitalisation [None]
